FAERS Safety Report 4894566-5 (Version None)
Quarter: 2006Q1

REPORT INFORMATION
  Report Type: 
  Country: None (occurrence: None)
  Receive Date: 20060127
  Receipt Date: 20060117
  Transmission Date: 20060701
  Serious: Yes (Disabling)
  Sender: FDA-Public Use
  Company Number: US-MERCK-0601USA02264

PATIENT
  Age: 32 Year
  Sex: Female
  Weight: 114 kg

DRUGS (4)
  1. VIOXX [Suspect]
     Indication: BACK PAIN
     Route: 065
     Dates: start: 20000530, end: 20020214
  2. VIOXX [Suspect]
     Route: 065
     Dates: start: 20000530, end: 20020214
  3. ASPIRIN [Concomitant]
     Route: 065
  4. ALEVE [Concomitant]
     Route: 065

REACTIONS (3)
  - HYPERTENSION [None]
  - INTERVERTEBRAL DISC DISORDER [None]
  - RED BLOOD CELL COUNT DECREASED [None]
